FAERS Safety Report 10750816 (Version 2)
Quarter: 2015Q1

REPORT INFORMATION
  Report Type: Report from Study
  Country: US (occurrence: US)
  Receive Date: 20150130
  Receipt Date: 20150304
  Transmission Date: 20150721
  Serious: Yes (Hospitalization, Other)
  Sender: FDA-Public Use
  Company Number: US-BAYER-2015-013342

PATIENT
  Age: 80 Year
  Sex: Female

DRUGS (1)
  1. STIVARGA [Suspect]
     Active Substance: REGORAFENIB
     Indication: COLORECTAL CANCER
     Dosage: DAILY DOSE 160 MG
     Route: 048
     Dates: start: 20150120, end: 20150130

REACTIONS (5)
  - Stevens-Johnson syndrome [None]
  - Fall [None]
  - Cholelithiasis [None]
  - Decreased appetite [None]
  - Muscular weakness [None]

NARRATIVE: CASE EVENT DATE: 20150125
